FAERS Safety Report 21155552 (Version 1)
Quarter: 2022Q3

REPORT INFORMATION
  Report Type: Spontaneous
  Country: US (occurrence: None)
  Receive Date: 20220729
  Receipt Date: 20220729
  Transmission Date: 20221027
  Serious: Yes (Other)
  Sender: FDA-Public Use
  Company Number: None

PATIENT
  Age: 63 Year
  Sex: Male

DRUGS (1)
  1. AVSOLA [Suspect]
     Active Substance: INFLIXIMAB-AXXQ
     Dosage: 1100MG  OTHER INTRAVENOUS?
     Route: 042
     Dates: start: 201912

REACTIONS (1)
  - Colon operation [None]

NARRATIVE: CASE EVENT DATE: 20220729
